FAERS Safety Report 7390140-X (Version None)
Quarter: 2011Q2

REPORT INFORMATION
  Report Type: 
  Country: None (occurrence: None)
  Receive Date: 20110401
  Receipt Date: 20110321
  Transmission Date: 20111010
  Serious: Yes (Other)
  Sender: FDA-Public Use
  Company Number: PHHY2010US85362

PATIENT
  Sex: Female
  Weight: 43 kg

DRUGS (2)
  1. VALACICLOVIR [Concomitant]
     Route: 048
  2. RECLAST [Suspect]
     Indication: OSTEOPOROSIS
     Dosage: 5 MG
     Route: 042
     Dates: start: 20101013

REACTIONS (12)
  - BLOOD CHLORIDE INCREASED [None]
  - NEUTROPHIL COUNT INCREASED [None]
  - HERPES SIMPLEX [None]
  - BLOOD ALKALINE PHOSPHATASE INCREASED [None]
  - BLOOD CREATININE INCREASED [None]
  - MONOCYTE COUNT INCREASED [None]
  - GLUCOSE URINE [None]
  - GLOMERULAR FILTRATION RATE DECREASED [None]
  - RED BLOOD CELL COUNT DECREASED [None]
  - LYMPHOCYTE COUNT [None]
  - BLOOD URINE PRESENT [None]
  - MEAN CELL VOLUME ABNORMAL [None]
